FAERS Safety Report 22288482 (Version 1)
Quarter: 2023Q2

REPORT INFORMATION
  Report Type: Spontaneous
  Country: US (occurrence: None)
  Receive Date: 20230504
  Receipt Date: 20230504
  Transmission Date: 20230722
  Serious: Yes (Hospitalization)
  Sender: FDA-Public Use
  Company Number: None

PATIENT
  Sex: Female

DRUGS (22)
  1. COPAXONE [Suspect]
     Active Substance: GLATIRAMER ACETATE
     Indication: Multiple sclerosis
     Route: 058
     Dates: start: 20150723
  2. ALPRAZP;A, [Concomitant]
  3. CALTRATE 600 CHW +D [Concomitant]
  4. CIPROFLOXACN [Concomitant]
  5. CRANBERRY [Concomitant]
     Active Substance: CRANBERRY
  6. ESCITALOPRAM [Concomitant]
     Active Substance: ESCITALOPRAM OXALATE
  7. GALZIN [Concomitant]
     Active Substance: ZINC ACETATE
  8. GINKGO [Concomitant]
     Active Substance: GINKGO
  9. GLATIRAMER [Concomitant]
     Active Substance: GLATIRAMER
  10. IBUPROFEN [Concomitant]
     Active Substance: IBUPROFEN
  11. LEVOTHYROXIN [Concomitant]
  12. LUBRICANT DRO EYE [Concomitant]
  13. MELATONIN [Concomitant]
     Active Substance: MELATONIN
  14. MIRALAX POW 3350 NF [Concomitant]
  15. MULTI CAP FOR HER [Concomitant]
  16. NITROFURANTOIN [Concomitant]
     Active Substance: NITROFURANTOIN
  17. RIZATRIPTAN [Concomitant]
  18. VIT DE HP [Concomitant]
  19. VITAMIN DE [Concomitant]
  20. XANAX [Concomitant]
     Active Substance: ALPRAZOLAM
  21. ZINC [Concomitant]
     Active Substance: ZINC
  22. ZINC OXIDE POW [Concomitant]

REACTIONS (6)
  - Urinary tract infection [None]
  - Bladder disorder [None]
  - Gastrointestinal disorder [None]
  - Movement disorder [None]
  - Fall [None]
  - Fatigue [None]
